FAERS Safety Report 6955898-X (Version None)
Quarter: 2010Q3

REPORT INFORMATION
  Report Type: 
  Country: None (occurrence: None)
  Receive Date: 20100830
  Receipt Date: 20100820
  Transmission Date: 20110219
  Serious: Yes (Other)
  Sender: FDA-Public Use
  Company Number: CA-ROCHE-723044

PATIENT
  Sex: Female

DRUGS (2)
  1. ACCUTANE [Suspect]
     Indication: ACNE
     Route: 048
     Dates: start: 20080101
  2. ACCUTANE [Suspect]
     Route: 048
     Dates: start: 20091201, end: 20100101

REACTIONS (4)
  - DEPRESSION [None]
  - DRY SKIN [None]
  - MOOD SWINGS [None]
  - SUICIDAL IDEATION [None]
